FAERS Safety Report 7419476-0 (Version None)
Quarter: 2011Q1

REPORT INFORMATION
  Report Type: 
  Country: None (occurrence: None)
  Receive Date: 20110302
  Receipt Date: 20101110
  Transmission Date: 20110831
  Serious: No
  Sender: FDA-Public Use
  Company Number: 021766

PATIENT
  Sex: Male

DRUGS (1)
  1. CIMZIA [Suspect]
     Dosage: SUBCUTANEOUS
     Route: 058
     Dates: start: 20100801

REACTIONS (4)
  - NASOPHARYNGITIS [None]
  - FREQUENT BOWEL MOVEMENTS [None]
  - SINUS DISORDER [None]
  - BREATH SOUNDS ABNORMAL [None]
